FAERS Safety Report 24677111 (Version 1)
Quarter: 2024Q4

REPORT INFORMATION
  Report Type: Report from Study
  Country: US (occurrence: US)
  Receive Date: 20241129
  Receipt Date: 20241129
  Transmission Date: 20250115
  Serious: Yes (Death)
  Sender: CSL BEHRING
  Company Number: US-BEH-2024186467

PATIENT
  Age: 80 Year
  Sex: Female
  Weight: 75.737 kg

DRUGS (1)
  1. HIZENTRA [Suspect]
     Active Substance: HUMAN IMMUNOGLOBULIN G
     Dosage: UNK (PRODUCT STRENGTH REPORTED 2)
     Route: 065

REACTIONS (1)
  - Death [Fatal]
